FAERS Safety Report 10441218 (Version 1)
Quarter: 2014Q3

REPORT INFORMATION
  Report Type: Spontaneous
  Country: US (occurrence: US)
  Receive Date: 20140909
  Receipt Date: 20140909
  Transmission Date: 20150326
  Serious: Yes (Death, Hospitalization)
  Sender: FDA-Public Use
  Company Number: PHHY2014US112035

PATIENT
  Age: 1 Year

DRUGS (1)
  1. METHADONE [Suspect]
     Active Substance: METHADONE HYDROCHLORIDE

REACTIONS (13)
  - Electroencephalogram abnormal [Fatal]
  - Pupil fixed [Fatal]
  - Drug level increased [Unknown]
  - Cerebellar infarction [Fatal]
  - Diabetes insipidus [Unknown]
  - Lethargy [Fatal]
  - Neurological decompensation [Fatal]
  - Bradycardia [Unknown]
  - Encephalitis [Fatal]
  - Brain oedema [Fatal]
  - Respiratory distress [Unknown]
  - Cyanosis [Unknown]
  - Central nervous system necrosis [Fatal]
